FAERS Safety Report 25060827 (Version 5)
Quarter: 2025Q2

REPORT INFORMATION
  Report Type: Spontaneous
  Country: US (occurrence: US)
  Receive Date: 20250310
  Receipt Date: 20250602
  Transmission Date: 20250717
  Serious: Yes (Life-Threatening, Other)
  Sender: NOVARTIS
  Company Number: US-002147023-NVSC2025US037204

PATIENT
  Age: 81 Year
  Sex: Female
  Weight: 78 kg

DRUGS (3)
  1. LEQVIO [Suspect]
     Active Substance: INCLISIRAN SODIUM
     Indication: Hyperlipidaemia
     Route: 058
     Dates: start: 20241203, end: 202412
  2. CICLOPIROX [Concomitant]
     Active Substance: CICLOPIROX
     Indication: Onychomycosis
     Dosage: UNK, BID (TOPICAL)
     Route: 050
     Dates: start: 20240516
  3. OZEMPIC [Concomitant]
     Active Substance: SEMAGLUTIDE
     Indication: Type 2 diabetes mellitus
     Dosage: UNK, QW
     Route: 058
     Dates: start: 20250210

REACTIONS (5)
  - Facial paralysis [Recovered/Resolved]
  - Swollen tongue [Recovered/Resolved]
  - Dysarthria [Recovered/Resolved]
  - Oedema peripheral [Recovered/Resolved]
  - Adverse drug reaction [Unknown]

NARRATIVE: CASE EVENT DATE: 20241201
